FAERS Safety Report 9988879 (Version 2)
Quarter: 2014Q1

REPORT INFORMATION
  Report Type: Report from Study
  Country: US (occurrence: US)
  Receive Date: 20140310
  Receipt Date: 20140310
  Transmission Date: 20141002
  Serious: Yes (Hospitalization)
  Sender: FDA-Public Use
  Company Number: US-ABBVIE-13P-163-1111016-00

PATIENT
  Age: 58 Year
  Sex: 0

DRUGS (10)
  1. HUMIRA [Suspect]
     Indication: CROHN^S DISEASE
     Route: 058
     Dates: start: 201306
  2. OMEPRAZOLE [Concomitant]
     Indication: GASTROOESOPHAGEAL REFLUX DISEASE
  3. OPANA [Concomitant]
     Indication: PAIN
  4. OXYCODONE [Concomitant]
     Indication: PAIN
  5. ZYRTEC [Concomitant]
     Indication: HYPERSENSITIVITY
     Dosage: DAILY
  6. ZZZ-QUIL [Concomitant]
     Indication: INSOMNIA
  7. FLAGYL [Concomitant]
  8. DICYCLOMINE [Concomitant]
     Indication: GASTROINTESTINAL PAIN
     Dosage: 3 TIMES A DAY AS NEEDED
  9. PREDNISONE [Concomitant]
  10. 6-MP [Concomitant]
     Indication: CROHN^S DISEASE
     Route: 048
     Dates: start: 201306

REACTIONS (5)
  - Crohn^s disease [Recovering/Resolving]
  - Abdominal pain [Unknown]
  - Diarrhoea [Unknown]
  - Weight decreased [Unknown]
  - Depression [Not Recovered/Not Resolved]
